FAERS Safety Report 4852424-6 (Version None)
Quarter: 2005Q4

REPORT INFORMATION
  Report Type: 
  Country: None (occurrence: None)
  Receive Date: 20051129
  Receipt Date: 20050729
  Transmission Date: 20060501
  Serious: No
  Sender: FDA-Public Use
  Company Number: WAES 0507USA04393

PATIENT
  Age: 70 Year
  Sex: Female

DRUGS (3)
  1. ZETIA [Suspect]
     Dosage: PO
     Route: 048
  2. CELEBREX [Concomitant]
  3. NASONEX [Concomitant]

REACTIONS (2)
  - RASH PRURITIC [None]
  - SKIN LESION [None]
